FAERS Safety Report 6342364-8 (Version None)
Quarter: 2009Q3

REPORT INFORMATION
  Report Type: 
  Country: None (occurrence: None)
  Receive Date: 20090907
  Receipt Date: 20090902
  Transmission Date: 20100115
  Serious: Yes (Death, Other)
  Sender: FDA-Public Use
  Company Number: US-ELI_LILLY_AND_COMPANY-US200909000700

PATIENT
  Age: 82 Year
  Sex: Female

DRUGS (4)
  1. ALIMTA [Suspect]
     Indication: NON-SMALL CELL LUNG CANCER
     Dosage: 500 MG/M2, UNK
     Dates: start: 20090701, end: 20090811
  2. DEXAMETHASONE [Concomitant]
     Dosage: 4 MG, 2/D
     Dates: start: 20090624, end: 20090810
  3. VITAMIN B-12 [Concomitant]
     Dosage: 1000 UG, UNK
     Dates: start: 20090624, end: 20090810
  4. FOLIC ACID [Concomitant]
     Dosage: 400 UG, UNK
     Dates: start: 20090624, end: 20090810

REACTIONS (4)
  - CARDIAC FAILURE CONGESTIVE [None]
  - HAEMOPTYSIS [None]
  - MELAENA [None]
  - PLATELET COUNT DECREASED [None]
